FAERS Safety Report 14845997 (Version 1)
Quarter: 2018Q2

REPORT INFORMATION
  Report Type: Spontaneous
  Country: FR (occurrence: FR)
  Receive Date: 20180504
  Receipt Date: 20180504
  Transmission Date: 20180711
  Serious: Yes (Other)
  Sender: FDA-Public Use
  Company Number: FR-MERCK KGAA-2047180

PATIENT
  Age: 58 Year
  Sex: Female

DRUGS (1)
  1. NOVOTHYROX [Suspect]
     Active Substance: LEVOTHYROXINE SODIUM
     Indication: HYPOTHYROIDISM
     Dates: start: 201703

REACTIONS (23)
  - Respiratory distress [None]
  - Dizziness [None]
  - Alopecia [None]
  - Arthralgia [None]
  - Anger [None]
  - Communication disorder [None]
  - Anti-thyroid antibody [None]
  - Blood cholesterol increased [None]
  - Headache [None]
  - Personal relationship issue [None]
  - Blindness [None]
  - Hot flush [None]
  - Anxiety [None]
  - Myalgia [None]
  - Loss of personal independence in daily activities [None]
  - Food allergy [None]
  - Depression [None]
  - Blood pressure fluctuation [None]
  - Blood uric acid increased [None]
  - Fatigue [None]
  - Insomnia [None]
  - Palpitations [None]
  - Hypersensitivity [None]

NARRATIVE: CASE EVENT DATE: 2017
